FAERS Safety Report 18184934 (Version 8)
Quarter: 2021Q2

REPORT INFORMATION
  Report Type: Report from Study
  Country: US (occurrence: US)
  Receive Date: 20200824
  Receipt Date: 20210625
  Transmission Date: 20210717
  Serious: Yes (Hospitalization, Other)
  Sender: FDA-Public Use
  Company Number: US-SHIRE-US202027172

PATIENT
  Sex: Female
  Weight: 59.5 kg

DRUGS (13)
  1. TEDUGLUTIDE [Suspect]
     Active Substance: TEDUGLUTIDE
     Indication: SHORT-BOWEL SYNDROME
     Dosage: 0.2980 (UNIT UNKNOWN), 1X/DAY:QD
     Route: 058
     Dates: start: 20200221
  2. TEDUGLUTIDE [Suspect]
     Active Substance: TEDUGLUTIDE
     Dosage: 0.298 MILLILITER, 1X/DAY:QD
     Route: 058
  3. TEDUGLUTIDE [Suspect]
     Active Substance: TEDUGLUTIDE
     Dosage: 0.298 MILLILITER, 1X/DAY:QD
     Route: 058
  4. TEDUGLUTIDE [Suspect]
     Active Substance: TEDUGLUTIDE
     Dosage: 0.298 MILLILITER (2.98 MG UNDER THE SKIN)
     Route: 058
  5. TEDUGLUTIDE [Suspect]
     Active Substance: TEDUGLUTIDE
     Dosage: 0.298 MILLILITER (2.98 MG UNDER THE SKIN)
     Route: 058
  6. TEDUGLUTIDE [Suspect]
     Active Substance: TEDUGLUTIDE
     Indication: SHORT-BOWEL SYNDROME
     Dosage: 0.2980 (UNIT UNKNOWN), 1X/DAY:QD
     Route: 058
     Dates: start: 20200221
  7. TEDUGLUTIDE [Suspect]
     Active Substance: TEDUGLUTIDE
     Dosage: 0.298 MILLILITER (2.98 MG UNDER THE SKIN)
     Route: 058
  8. TEDUGLUTIDE [Suspect]
     Active Substance: TEDUGLUTIDE
     Indication: SHORT-BOWEL SYNDROME
     Dosage: 0.2980 (UNIT UNKNOWN), 1X/DAY:QD
     Route: 058
     Dates: start: 20200221
  9. TEDUGLUTIDE [Suspect]
     Active Substance: TEDUGLUTIDE
     Dosage: 0.298 MILLILITER, 1X/DAY:QD
     Route: 058
  10. TEDUGLUTIDE [Suspect]
     Active Substance: TEDUGLUTIDE
     Dosage: 0.298 MILLILITER (2.98 MG UNDER THE SKIN)
     Route: 058
  11. TEDUGLUTIDE [Suspect]
     Active Substance: TEDUGLUTIDE
     Indication: SHORT-BOWEL SYNDROME
     Dosage: 0.2980 (UNIT UNKNOWN), 1X/DAY:QD
     Route: 058
     Dates: start: 20200221
  12. TEDUGLUTIDE [Suspect]
     Active Substance: TEDUGLUTIDE
     Dosage: 0.298 MILLILITER, 1X/DAY:QD
     Route: 058
  13. CUVITRU [Suspect]
     Active Substance: HUMAN IMMUNOGLOBULIN G
     Indication: IMMUNODEFICIENCY COMMON VARIABLE
     Route: 065

REACTIONS (7)
  - Drug ineffective [Unknown]
  - Decreased appetite [Recovered/Resolved]
  - Gastrointestinal disorder [Unknown]
  - Dehydration [Recovered/Resolved]
  - Short-bowel syndrome [Unknown]
  - Nausea [Recovered/Resolved]
  - Product dose omission issue [Unknown]
